FAERS Safety Report 16827863 (Version 4)
Quarter: 2019Q4

REPORT INFORMATION
  Report Type: Spontaneous
  Country: US (occurrence: US)
  Receive Date: 20190919
  Receipt Date: 20191202
  Transmission Date: 20200122
  Serious: No
  Sender: FDA-Public Use
  Company Number: US-PFIZER INC-2018482669

PATIENT
  Sex: Female
  Weight: 45.81 kg

DRUGS (1)
  1. XALATAN [Suspect]
     Active Substance: LATANOPROST
     Indication: GLAUCOMA
     Dosage: 1 DROP IN EACH EYE AT BEDTIME
     Route: 047

REACTIONS (4)
  - Product administration error [Unknown]
  - Arthropathy [Unknown]
  - Product storage error [Unknown]
  - Hypersensitivity [Unknown]
